FAERS Safety Report 4825054-X (Version None)
Quarter: 2005Q4

REPORT INFORMATION
  Report Type: 
  Country: None (occurrence: None)
  Receive Date: 20051108
  Receipt Date: 20051026
  Transmission Date: 20060501
  Serious: Yes (Other)
  Sender: FDA-Public Use
  Company Number: 218905

PATIENT
  Age: 76 Year
  Sex: Male
  Weight: 79 kg

DRUGS (10)
  1. RITUXIMAB (RITUXIMAB) CONC FOR SOLUTION FOR INFUSION [Suspect]
     Indication: LYMPHOMA
     Dosage: 700 MG, SINGLE, INTRAVENOUS
     Route: 042
     Dates: start: 20040531, end: 20041124
  2. THERABUBICIN (PIRARUBICIN [Suspect]
     Indication: LYMPHOMA
     Dosage: 50 MG, INTRAVENOUS
     Route: 042
     Dates: start: 20040602, end: 20041020
  3. EDOXAN (CYCLOPHOSPHAMIDE) [Suspect]
     Indication: LYMPHOMA
     Dosage: 900 MG, INTRAVNEOUS
     Route: 042
     Dates: start: 20040602, end: 20041020
  4. FILDESIN (VINDESINE SULFATE) [Suspect]
     Indication: LYMPHOMA
     Dosage: 3 MG, INTRAVENOUS
     Route: 042
     Dates: start: 20040602, end: 20041020
  5. PREDISOLONE [Suspect]
     Indication: LYMPHOMA
     Dosage: 50 MG
     Dates: start: 20040602, end: 20041020
  6. LOXONIN (LOXOPROFEN SODIUM) [Concomitant]
  7. POLARAMINE (DEXCHLORPHENRAMINE MALEATE) [Concomitant]
  8. SELBEX (TEPRENONE) [Concomitant]
  9. NAUZELIN (DOMPERIDONE) [Concomitant]
  10. VITAMEDIN (PYRIDOXINE HYROCHLORIDE, THIAMINE HYDROCHLORIDE, CYANOCOBAL [Concomitant]

REACTIONS (3)
  - NEUTROPENIA [None]
  - PHARYNX DISCOMFORT [None]
  - PRURITUS [None]
